FAERS Safety Report 9713678 (Version 2)
Quarter: 2014Q1

REPORT INFORMATION
  Report Type: Spontaneous
  Country: RO (occurrence: RO)
  Receive Date: 20131126
  Receipt Date: 20140110
  Transmission Date: 20141002
  Serious: Yes (Death, Other)
  Sender: FDA-Public Use
  Company Number: RO-ELI_LILLY_AND_COMPANY-RO201311006883

PATIENT
  Age: 39 Year
  Sex: Male

DRUGS (1)
  1. PEMETREXED [Suspect]
     Dosage: UNK
     Dates: start: 20120614

REACTIONS (3)
  - Death [Fatal]
  - Intracranial aneurysm [Unknown]
  - Haemothorax [Unknown]
